FAERS Safety Report 11423659 (Version 2)
Quarter: 2016Q1

REPORT INFORMATION
  Report Type: Spontaneous
  Country: US (occurrence: US)
  Receive Date: 20150827
  Receipt Date: 20160302
  Transmission Date: 20160525
  Serious: No
  Sender: FDA-Public Use
  Company Number: US-B.I. PHARMACEUTICALS,INC./RIDGEFIELD-2015-BI-44702BP

PATIENT
  Age: 80 Year
  Sex: Female
  Weight: 194 kg

DRUGS (13)
  1. SPIRIVA [Suspect]
     Active Substance: TIOTROPIUM BROMIDE MONOHYDRATE
     Indication: ASTHMA
     Dosage: 10 MCG
     Route: 055
     Dates: start: 20150727
  2. CITRACEL [Concomitant]
     Indication: DIVERTICULITIS
     Dosage: (TABLET) STRENGTH: 2 TABLETS; DAILY DOSE: 2 TABLETS
     Route: 048
  3. SYMBICORT [Concomitant]
     Active Substance: BUDESONIDE\FORMOTEROL FUMARATE DIHYDRATE
     Indication: CHRONIC OBSTRUCTIVE PULMONARY DISEASE
     Dosage: TOOK 2 PUFFS TWICE DAILY WITH A STRENGTH: 160 - 4.5; DAILY DOSE: 640 - 18,
     Route: 055
     Dates: start: 2008
  4. SYMBICORT [Concomitant]
     Active Substance: BUDESONIDE\FORMOTEROL FUMARATE DIHYDRATE
     Indication: ASTHMA
  5. OMEGA 3 [Concomitant]
     Active Substance: OMEGA-3 FATTY ACIDS
     Indication: PRODUCT USED FOR UNKNOWN INDICATION
     Route: 048
  6. PROAIR HFA [Concomitant]
     Active Substance: ALBUTEROL SULFATE
     Indication: ASTHMA
     Dosage: FORMULATION: SPRAY, TOOK 2 PUFFS WITH A STRENGTH: 180MCG PRN
     Route: 055
  7. PROAIR HFA [Concomitant]
     Active Substance: ALBUTEROL SULFATE
     Indication: CHRONIC OBSTRUCTIVE PULMONARY DISEASE
  8. NEXIUM [Concomitant]
     Active Substance: ESOMEPRAZOLE MAGNESIUM
     Indication: GASTROOESOPHAGEAL REFLUX DISEASE
     Dosage: 40 MG
     Route: 048
     Dates: start: 2000
  9. SPIRIVA [Suspect]
     Active Substance: TIOTROPIUM BROMIDE MONOHYDRATE
     Dosage: 10 MCG
     Route: 055
     Dates: start: 20150629
  10. CUTURELLE [Concomitant]
     Indication: DIVERTICULITIS
     Route: 048
  11. K DUR [Concomitant]
     Indication: BLOOD POTASSIUM DECREASED
     Dosage: 20 MEQ
     Route: 048
     Dates: start: 1995
  12. MYRBETRIQ [Concomitant]
     Active Substance: MIRABEGRON
     Indication: URINARY INCONTINENCE
     Dosage: 50 MG
     Route: 048
     Dates: start: 201505
  13. VICODIN [Concomitant]
     Active Substance: ACETAMINOPHEN\HYDROCODONE BITARTRATE
     Indication: BACK PAIN
     Route: 048

REACTIONS (3)
  - Dysphonia [Recovered/Resolved]
  - Intentional product use issue [Not Recovered/Not Resolved]
  - Off label use [Unknown]

NARRATIVE: CASE EVENT DATE: 20150727
